FAERS Safety Report 4615188-7 (Version None)
Quarter: 2005Q1

REPORT INFORMATION
  Report Type: 
  Country: None (occurrence: None)
  Receive Date: 20050322
  Receipt Date: 20040830
  Transmission Date: 20050727
  Serious: Yes (Hospitalization)
  Sender: FDA-Public Use
  Company Number: US-SANOFI-SYNTHELABO-A03200403008

PATIENT
  Sex: Female

DRUGS (13)
  1. AMBIEN [Suspect]
     Indication: DRUG USE FOR UNKNOWN INDICATION
     Route: 048
     Dates: start: 20031021, end: 20031229
  2. EFFEXOR XR [Suspect]
     Route: 048
     Dates: start: 20031113
  3. REMERON [Concomitant]
     Route: 048
     Dates: start: 20031030
  4. REMERON [Concomitant]
     Route: 048
     Dates: start: 20040223
  5. ARIPIPRAZOLE [Concomitant]
     Route: 048
     Dates: start: 20031020, end: 20031229
  6. ARIPIPRAZOLE [Concomitant]
     Route: 048
     Dates: start: 20031210, end: 20031229
  7. EFFEXOR XR [Concomitant]
     Route: 048
  8. GABITRIL [Concomitant]
     Dosage: 4 MG PO QD AND 8 MG PO HS
     Route: 048
     Dates: start: 20031021, end: 20031229
  9. KLONOPIN [Concomitant]
     Route: 048
     Dates: end: 20031229
  10. ATIVAN [Concomitant]
     Route: 048
     Dates: start: 20020821
  11. GABITRIL [Concomitant]
     Route: 048
     Dates: end: 20031229
  12. ATIVAN [Concomitant]
     Route: 048
  13. MEDICINALPRODUCT NOT SPECIFIED BY SENDER [Concomitant]

REACTIONS (3)
  - CAESAREAN SECTION [None]
  - DRUG EXPOSURE DURING PREGNANCY [None]
  - PREMATURE LABOUR [None]
